FAERS Safety Report 25895747 (Version 1)
Quarter: 2025Q4

REPORT INFORMATION
  Report Type: Spontaneous
  Country: CH (occurrence: CH)
  Receive Date: 20251008
  Receipt Date: 20251008
  Transmission Date: 20260118
  Serious: Yes (Other)
  Sender: ROCHE
  Company Number: None

PATIENT
  Age: 52 Year
  Sex: Female

DRUGS (2)
  1. HERCEPTIN [Suspect]
     Active Substance: TRASTUZUMAB
     Indication: HER2 positive breast cancer
     Dosage: 1 TOTAL
     Route: 065
     Dates: start: 20181011, end: 20190124
  2. PERJETA [Suspect]
     Active Substance: PERTUZUMAB
     Indication: HER2 positive breast cancer
     Dosage: 1 TOTAL
     Route: 065
     Dates: start: 20181011, end: 20190124

REACTIONS (16)
  - Decreased appetite [Recovered/Resolved]
  - Weight decreased [Recovered/Resolved]
  - Dysuria [Recovered/Resolved]
  - Diarrhoea [Recovered/Resolved]
  - Fatigue [Recovered/Resolved]
  - Dry mouth [Recovered/Resolved]
  - Sensory disturbance [Recovered/Resolved]
  - Dysphagia [Recovered/Resolved]
  - Impaired work ability [Recovered/Resolved]
  - Dizziness [Recovered/Resolved]
  - Nausea [Recovered/Resolved]
  - Dry eye [Recovered/Resolved]
  - Influenza like illness [Recovered/Resolved]
  - Alopecia [Not Recovered/Not Resolved]
  - Dysgeusia [Recovered/Resolved]
  - Constipation [Recovered/Resolved]

NARRATIVE: CASE EVENT DATE: 20181011
